FAERS Safety Report 21477762 (Version 1)
Quarter: 2022Q4

REPORT INFORMATION
  Report Type: Report from Study
  Country: CA (occurrence: CA)
  Receive Date: 20221019
  Receipt Date: 20221019
  Transmission Date: 20230113
  Serious: Yes (Other)
  Sender: FDA-Public Use
  Company Number: CA-JNJFOC-20221031974

PATIENT
  Age: 16 Year
  Sex: Female
  Weight: 48 kg

DRUGS (1)
  1. REMICADE [Suspect]
     Active Substance: INFLIXIMAB
     Indication: Crohn^s disease
     Dosage: ON 15-OCT-2022, PATIENT RECEIVED 24TH INFLIXIMAB RECOMBINANT INFUSION OF 400 MG AND PARTIAL HARVEY-B
     Route: 042
     Dates: start: 20200723

REACTIONS (2)
  - Hypersensitivity [Recovered/Resolved]
  - Diarrhoea [Unknown]

NARRATIVE: CASE EVENT DATE: 20220917
